FAERS Safety Report 12800426 (Version 2)
Quarter: 2016Q4

REPORT INFORMATION
  Report Type: Spontaneous
  Country: IT (occurrence: IT)
  Receive Date: 20160930
  Receipt Date: 20161017
  Transmission Date: 20170207
  Serious: Yes (Hospitalization)
  Sender: FDA-Public Use
  Company Number: PHHY2016IT132097

PATIENT
  Age: 82 Year
  Sex: Male

DRUGS (6)
  1. CARDIOASPIRIN [Concomitant]
     Active Substance: ASPIRIN
     Indication: PRODUCT USED FOR UNKNOWN INDICATION
     Dosage: 100 MG, UNK
     Route: 048
  2. DIBASE [Concomitant]
     Active Substance: CHOLECALCIFEROL
     Indication: OSTEOPOROSIS
     Dosage: 1 DF, UNK
     Route: 048
  3. ACTONEL [Concomitant]
     Active Substance: RISEDRONATE SODIUM
     Indication: OSTEOPOROSIS
     Dosage: 35 MG, UNK
     Route: 048
  4. PREVEX//FELODIPINE [Concomitant]
     Indication: HYPERTENSION
     Dosage: 10 MG, UNK
     Route: 048
  5. AUGMENTIN [Concomitant]
     Active Substance: AMOXICILLIN\CLAVULANATE POTASSIUM
     Indication: PRODUCT USED FOR UNKNOWN INDICATION
     Dosage: 1 DF, QD
     Route: 065
  6. ATENOLOL. [Suspect]
     Active Substance: ATENOLOL
     Indication: HYPERTENSION
     Dosage: 100 MG, QD
     Route: 048
     Dates: start: 2009, end: 20160810

REACTIONS (4)
  - Drop attacks [Recovered/Resolved]
  - Fall [Recovered/Resolved]
  - Bradycardia [Recovered/Resolved]
  - Syncope [Recovered/Resolved]

NARRATIVE: CASE EVENT DATE: 20160810
